FAERS Safety Report 10676620 (Version 1)
Quarter: 2014Q4

REPORT INFORMATION
  Report Type: Spontaneous
  Country: GB (occurrence: GB)
  Receive Date: 20141226
  Receipt Date: 20141226
  Transmission Date: 20150529
  Serious: Yes (Disabling)
  Sender: FDA-Public Use
  Company Number: GB-009507513-1412GBR008944

PATIENT
  Age: 23 Year
  Sex: Female
  Weight: 65 kg

DRUGS (7)
  1. AMOXICILLIN. [Concomitant]
     Active Substance: AMOXICILLIN
     Dates: start: 20141027, end: 20141103
  2. LIDOCAINE HYDROCHLORIDE. [Concomitant]
     Active Substance: LIDOCAINE HYDROCHLORIDE
     Dates: start: 20141204, end: 20141206
  3. NAPROXEN. [Concomitant]
     Active Substance: NAPROXEN
     Dates: start: 20141005, end: 20141012
  4. FLOXACILLIN [Concomitant]
     Active Substance: FLUCLOXACILLIN
     Dates: start: 20141205
  5. ETONOGESTREL IMPLANT- UNKNOWN [Suspect]
     Active Substance: ETONOGESTREL
     Dosage: UNK
     Dates: start: 20141204
  6. AMITRIPTYLINE HYDROCHLORIDE. [Concomitant]
     Active Substance: AMITRIPTYLINE HYDROCHLORIDE
     Dates: start: 20141027, end: 20141127
  7. MEDROXYPROGESTERONE ACETATE. [Concomitant]
     Active Substance: MEDROXYPROGESTERONE ACETATE
     Dates: start: 20140912, end: 20141205

REACTIONS (6)
  - Rash macular [Recovering/Resolving]
  - Implant site pain [Unknown]
  - Malaise [Unknown]
  - Myalgia [Unknown]
  - Implant site erythema [Unknown]
  - Urticaria [Unknown]
